FAERS Safety Report 7676492-1 (Version None)
Quarter: 2011Q3

REPORT INFORMATION
  Report Type: 
  Country: None (occurrence: None)
  Receive Date: 20110811
  Receipt Date: 20110808
  Transmission Date: 20111222
  Serious: Yes (Other)
  Sender: FDA-Public Use
  Company Number: US-BAYER-2011-012811

PATIENT
  Age: 87 Year
  Sex: Male

DRUGS (6)
  1. CIPROFLOXACIN [Concomitant]
     Indication: RASH
  2. SORAFENIB (RAF KINASE INHIBITOR) [Suspect]
     Indication: HEPATIC NEOPLASM MALIGNANT
     Dosage: 400 MG, BID  (2 TABLETS TWICE)
     Route: 048
     Dates: start: 20110201
  3. ANTIHYPERTENSIVES [Concomitant]
  4. SHOT FOR LOW BLOOD COUNTS [Concomitant]
     Indication: BLOOD COUNT ABNORMAL
  5. SORAFENIB (RAF KINASE INHIBITOR) [Suspect]
     Dosage: 400 MG, BID
     Route: 048
     Dates: start: 20110211
  6. FERROUS SULFATE TAB [Concomitant]
     Dosage: MONTHLY

REACTIONS (15)
  - DECUBITUS ULCER [None]
  - BURNING SENSATION [None]
  - RASH [None]
  - NAUSEA [None]
  - APHAGIA [None]
  - TONGUE BLISTERING [None]
  - DECREASED APPETITE [None]
  - DYSPHONIA [None]
  - OROPHARYNGEAL BLISTERING [None]
  - WEIGHT DECREASED [None]
  - DYSPHAGIA [None]
  - STOMATITIS [None]
  - DIARRHOEA [None]
  - CONSTIPATION [None]
  - HYPERTENSION [None]
